FAERS Safety Report 9282123 (Version 1)
Quarter: 2013Q2

REPORT INFORMATION
  Report Type: Spontaneous
  Country: BR (occurrence: BR)
  Receive Date: 20130510
  Receipt Date: 20130510
  Transmission Date: 20140414
  Serious: Yes (Hospitalization)
  Sender: FDA-Public Use
  Company Number: BR-AMGEN-BRASP2013032568

PATIENT
  Age: 54 Year
  Sex: Female
  Weight: 60 kg

DRUGS (2)
  1. ENBREL [Suspect]
     Indication: RHEUMATOID ARTHRITIS
     Dosage: 50 MG, ONCE WEEKLY
     Route: 058
     Dates: start: 201210, end: 201304
  2. CELESTONE                          /00008501/ [Concomitant]
     Dosage: 0.5 MG (ONE TABLET), 1X/DAY
     Route: 048

REACTIONS (4)
  - Palpitations [Unknown]
  - Feeling abnormal [Unknown]
  - Swelling [Unknown]
  - Swelling face [Unknown]
